FAERS Safety Report 7390446-4 (Version None)
Quarter: 2011Q2

REPORT INFORMATION
  Report Type: 
  Country: None (occurrence: None)
  Receive Date: 20110401
  Receipt Date: 20110323
  Transmission Date: 20111010
  Serious: Yes (Hospitalization, Disabling, Other)
  Sender: FDA-Public Use
  Company Number: US-MERCK-1012USA01906

PATIENT
  Age: 62 Year
  Sex: Male

DRUGS (2)
  1. ALENDRONATE SODIUM [Suspect]
     Indication: SPINAL COMPRESSION FRACTURE
     Route: 048
     Dates: start: 20080528, end: 20090620
  2. FOSAMAX [Suspect]
     Indication: SPINAL COMPRESSION FRACTURE
     Route: 048
     Dates: start: 20040729, end: 20071029

REACTIONS (13)
  - HYPERCALCAEMIA [None]
  - OVERDOSE [None]
  - FEMUR FRACTURE [None]
  - ANAEMIA [None]
  - FEMORAL ARTERIAL STENOSIS [None]
  - FRACTURE NONUNION [None]
  - LUNG NEOPLASM [None]
  - VITAMIN D DEFICIENCY [None]
  - HYPERCHOLESTEROLAEMIA [None]
  - COMPRESSION FRACTURE [None]
  - MENISCUS LESION [None]
  - TOOTH DISORDER [None]
  - SPINAL FRACTURE [None]
